FAERS Safety Report 4945356-6 (Version None)
Quarter: 2006Q1

REPORT INFORMATION
  Report Type: 
  Country: None (occurrence: None)
  Receive Date: 20060315
  Receipt Date: 20060315
  Transmission Date: 20060701
  Serious: Yes (Life-Threatening, Hospitalization)
  Sender: FDA-Public Use
  Company Number: None

PATIENT
  Age: 53 Year
  Sex: Male
  Weight: 87.7 kg

DRUGS (2)
  1. METOPROLOL   100 MG  BID [Suspect]
     Indication: ATRIAL FIBRILLATION
     Dosage: 100 MG BID  (THERAPY DATES: 3/24/05 --} D/C)
     Dates: start: 20050324
  2. DIGOXIN [Suspect]
     Indication: ATRIAL FIBRILLATION
     Dosage: 0.125MG QD

REACTIONS (1)
  - LOSS OF CONSCIOUSNESS [None]
